FAERS Safety Report 6603406-5 (Version None)
Quarter: 2010Q1

REPORT INFORMATION
  Report Type: 
  Country: None (occurrence: None)
  Receive Date: 20100226
  Receipt Date: 20090612
  Transmission Date: 20100710
  Serious: No
  Sender: FDA-Public Use
  Company Number: A0780566A

PATIENT
  Age: 64 Year
  Sex: Female
  Weight: 55 kg

DRUGS (7)
  1. VALTREX [Suspect]
     Indication: GENITAL HERPES
     Dosage: 500G TWICE PER DAY
     Route: 048
     Dates: start: 20070101
  2. ZOVIRAX [Suspect]
     Indication: GENITAL HERPES
     Route: 048
     Dates: start: 19840101, end: 20070101
  3. ACYCLOVIR [Suspect]
     Indication: GENITAL HERPES
     Route: 048
  4. PREMARIN [Concomitant]
  5. LEVOTHYROXINE [Concomitant]
  6. KLONOPIN [Concomitant]
  7. COENZYME Q10 [Concomitant]

REACTIONS (7)
  - ASTHENIA [None]
  - DRUG INEFFECTIVE [None]
  - FATIGUE [None]
  - HERPES VIRUS INFECTION [None]
  - INCONTINENCE [None]
  - LIP PAIN [None]
  - VULVOVAGINAL DISCOMFORT [None]
